FAERS Safety Report 5312484-5 (Version None)
Quarter: 2007Q2

REPORT INFORMATION
  Report Type: 
  Country: None (occurrence: None)
  Receive Date: 20070430
  Receipt Date: 20061228
  Transmission Date: 20071010
  Serious: Yes (Hospitalization)
  Sender: FDA-Public Use
  Company Number: 2006UW28657

PATIENT
  Age: 77 Year
  Sex: Male
  Weight: 77.1 kg

DRUGS (1)
  1. NEXIUM [Suspect]
     Indication: GASTROOESOPHAGEAL REFLUX DISEASE
     Route: 048
     Dates: start: 20061001

REACTIONS (4)
  - DIZZINESS [None]
  - FLATULENCE [None]
  - HICCUPS [None]
  - HYPERHIDROSIS [None]
